FAERS Safety Report 8265416-4 (Version None)
Quarter: 2012Q2

REPORT INFORMATION
  Report Type: 
  Country: None (occurrence: None)
  Receive Date: 20120406
  Receipt Date: 20120330
  Transmission Date: 20120825
  Serious: Yes (Hospitalization, Other)
  Sender: FDA-Public Use
  Company Number: BR-PFIZER INC-2012009058

PATIENT
  Age: 53 Year
  Sex: Female
  Weight: 72 kg

DRUGS (4)
  1. PROPRANOLOL [Concomitant]
     Dosage: 10 MG, 1X/DAY
  2. FUROSEMIDE [Concomitant]
     Dosage: UNK
  3. SUTENT [Suspect]
     Indication: PANCREATIC CARCINOMA
     Dosage: 37.5 MG, 1X/DAY (SECOND CYCLE, CONTINUE USE)
     Route: 048
     Dates: start: 20120104, end: 20120201
  4. OMEPRAZOLE [Concomitant]
     Dosage: 20 MG, 1X/DAY

REACTIONS (17)
  - SWELLING [None]
  - FATIGUE [None]
  - WEIGHT DECREASED [None]
  - MOUTH INJURY [None]
  - HEPATIC PAIN [None]
  - DRY THROAT [None]
  - BLOOD PRESSURE ABNORMAL [None]
  - ASCITES [None]
  - AGEUSIA [None]
  - SOMNOLENCE [None]
  - BLOOD GLUCOSE INCREASED [None]
  - YELLOW SKIN [None]
  - ASTHENIA [None]
  - SPEECH DISORDER [None]
  - ABDOMINAL PAIN [None]
  - MALAISE [None]
  - DIARRHOEA [None]
